FAERS Safety Report 13911368 (Version 1)
Quarter: 2017Q3

REPORT INFORMATION
  Report Type: Spontaneous
  Country: US (occurrence: US)
  Receive Date: 20170828
  Receipt Date: 20170828
  Transmission Date: 20171127
  Serious: Yes (Hospitalization, Other)
  Sender: FDA-Public Use
  Company Number: US-GLAXOSMITHKLINE-US2017132104

PATIENT
  Age: 61 Year
  Sex: Female

DRUGS (2)
  1. VENTOLIN HFA [Suspect]
     Active Substance: ALBUTEROL SULFATE
     Indication: ASTHMA
     Dosage: UNK UNK, PRN
     Route: 055
     Dates: start: 2012
  2. IMITREX [Suspect]
     Active Substance: SUMATRIPTAN SUCCINATE
     Indication: MIGRAINE
     Dosage: UNK
     Route: 045
     Dates: start: 2016

REACTIONS (6)
  - Rotator cuff repair [Recovering/Resolving]
  - Arthroscopy [Recovering/Resolving]
  - Shoulder operation [Recovering/Resolving]
  - Hip arthroplasty [Recovering/Resolving]
  - Hip surgery [Recovering/Resolving]
  - Tenoplasty [Recovering/Resolving]

NARRATIVE: CASE EVENT DATE: 20130731
